FAERS Safety Report 8461731-X (Version None)
Quarter: 2012Q2

REPORT INFORMATION
  Report Type: 
  Country: None (occurrence: None)
  Receive Date: 20120618
  Receipt Date: 20120608
  Transmission Date: 20120825
  Serious: Yes (Hospitalization)
  Sender: FDA-Public Use
  Company Number: 2012MA007329

PATIENT
  Age: 76 Year
  Sex: Male

DRUGS (5)
  1. CINNARIZINE [Concomitant]
  2. SIMVASTATIN [Suspect]
     Indication: HYPERCHOLESTEROLAEMIA
     Dosage: PO
     Route: 048
  3. GLUCOSAMINE [Concomitant]
  4. DICLOFENAC SODIUM [Suspect]
     Indication: OSTEOARTHRITIS
     Dosage: PO
     Route: 048
  5. SILDENAFIL [Concomitant]

REACTIONS (2)
  - MYOPATHY [None]
  - RENAL INJURY [None]
